FAERS Safety Report 24591978 (Version 1)
Quarter: 2024Q4

REPORT INFORMATION
  Report Type: Spontaneous
  Country: JP (occurrence: JP)
  Receive Date: 20241108
  Receipt Date: 20241108
  Transmission Date: 20250115
  Serious: Yes (Hospitalization)
  Sender: CATALYST PHARMA
  Company Number: JP-CATALYSTPHARMACEUTICALPARTNERS-JP-CATA-24-01279

PATIENT
  Sex: Female

DRUGS (7)
  1. FYCOMPA [Suspect]
     Active Substance: PERAMPANEL
     Indication: Epilepsy
     Dosage: 2.0 MILLIGRAM(S) (2 MILLIGRAM(S), 1 IN 1 DAY)
     Route: 048
     Dates: start: 20240525, end: 20240621
  2. FYCOMPA [Suspect]
     Active Substance: PERAMPANEL
     Dosage: 6.0 MILLIGRAM(S) (6 MILLIGRAM(S), 1 IN 1 DAY)
     Route: 048
     Dates: start: 20240622
  3. LEVETIRACETAM [Suspect]
     Active Substance: LEVETIRACETAM
     Indication: Epilepsy
     Dosage: 1000 MILLIGRAM(S) (1000 MILLIGRAM(S), 1 IN 1 DAY)
     Route: 065
     Dates: start: 20240524, end: 20240524
  4. LEVETIRACETAM [Suspect]
     Active Substance: LEVETIRACETAM
     Dosage: 2000 MILLIGRAM(S) (2000 MILLIGRAM(S), 1 IN 1 DAY)
     Route: 065
     Dates: start: 20240525
  5. VIMPAT [Suspect]
     Active Substance: LACOSAMIDE
     Indication: Epilepsy
     Dosage: 100.0 MILLIGRAM(S) (100 MILLIGRAM(S), 1 IN 1 DAY)
     Route: 065
     Dates: end: 20240516
  6. VIMPAT [Suspect]
     Active Substance: LACOSAMIDE
     Dosage: 200.0 MILLIGRAM(S) (200 MILLIGRAM(S), 1 IN 1 DAY)
     Route: 065
     Dates: start: 20240517, end: 20240621
  7. VIMPAT [Suspect]
     Active Substance: LACOSAMIDE
     Dosage: 300.0 MILLIGRAM(S) (300 MILLIGRAM(S), 1 IN 1 DAY)
     Route: 065
     Dates: start: 20240622

REACTIONS (2)
  - Altered state of consciousness [Recovered/Resolved]
  - Urinary tract infection [Recovered/Resolved]

NARRATIVE: CASE EVENT DATE: 20240619
